FAERS Safety Report 8585613-8 (Version None)
Quarter: 2012Q3

REPORT INFORMATION
  Report Type: 
  Country: None (occurrence: None)
  Receive Date: 20120810
  Receipt Date: 20120730
  Transmission Date: 20120928
  Serious: Yes (Life-Threatening, Other)
  Sender: FDA-Public Use
  Company Number: JP-JNJFOC-20111208015

PATIENT
  Sex: Male
  Weight: 77 kg

DRUGS (5)
  1. ANTEBATE [Concomitant]
     Indication: PSORIASIS
     Route: 061
  2. STELARA [Suspect]
     Indication: PSORIASIS
     Route: 058
     Dates: start: 20111118
  3. STELARA [Suspect]
     Route: 058
     Dates: start: 20111216
  4. OXAROL [Concomitant]
     Indication: PSORIASIS
     Route: 061
  5. FULMETA [Concomitant]
     Indication: PSORIASIS

REACTIONS (1)
  - THYROID CANCER [None]
